FAERS Safety Report 4956941-X (Version None)
Quarter: 2006Q1

REPORT INFORMATION
  Report Type: 
  Country: None (occurrence: None)
  Receive Date: 20060323
  Receipt Date: 20060314
  Transmission Date: 20060701
  Serious: Yes (Hospitalization)
  Sender: FDA-Public Use
  Company Number: 2005BI014923

PATIENT
  Age: 62 Year
  Sex: Female

DRUGS (22)
  1. AVONEX [Suspect]
     Indication: MULTIPLE SCLEROSIS
     Dosage: 30 UG; QW; IM
     Route: 030
     Dates: start: 19990729, end: 20030101
  2. AVONEX [Suspect]
     Indication: MULTIPLE SCLEROSIS
     Dosage: 30 UG; QW; IM
     Route: 030
     Dates: start: 20030101
  3. AVONEX [Suspect]
     Indication: MULTIPLE SCLEROSIS
     Dosage: 30 UG; QW; IM
     Route: 030
     Dates: start: 20050401
  4. VIOXX [Concomitant]
  5. PREDNISONE [Concomitant]
  6. ADDERALL 10 [Concomitant]
  7. EVISTA [Concomitant]
  8. IBUPROFEN [Concomitant]
  9. MIACALCIN [Concomitant]
  10. FOSAMAX [Concomitant]
  11. TOPROL-XL [Concomitant]
  12. KLONOPIN [Concomitant]
  13. ELAVIL [Concomitant]
  14. PRILOSEC [Concomitant]
  15. ESTRATEST H.S. [Concomitant]
  16. VITAMIN B-12 [Concomitant]
  17. VITAMIN E [Concomitant]
  18. CALTRATE [Concomitant]
  19. MULTI-VITAMIN [Concomitant]
  20. TUMS [Concomitant]
  21. MYLANTA [Concomitant]
  22. PROVERA [Concomitant]

REACTIONS (6)
  - ANAESTHETIC COMPLICATION [None]
  - CORONARY ARTERY OCCLUSION [None]
  - HEART RATE INCREASED [None]
  - SPINAL LAMINECTOMY [None]
  - SURGERY [None]
  - SURGICAL PROCEDURE REPEATED [None]
